FAERS Safety Report 17745896 (Version 2)
Quarter: 2020Q2

REPORT INFORMATION
  Report Type: Spontaneous
  Country: DE (occurrence: DE)
  Receive Date: 20200505
  Receipt Date: 20200629
  Transmission Date: 20200714
  Serious: Yes (Hospitalization)
  Sender: FDA-Public Use
  Company Number: NVSC2020DE120593

PATIENT
  Sex: Female

DRUGS (5)
  1. TECFIDERA [Suspect]
     Active Substance: DIMETHYL FUMARATE
     Indication: MULTIPLE SCLEROSIS
     Dosage: 480 MG, QD
     Route: 048
     Dates: start: 20140301, end: 201912
  2. FAMPYRA [Suspect]
     Active Substance: DALFAMPRIDINE
     Dosage: 20 MG, QD
     Route: 048
     Dates: start: 201403, end: 2019
  3. CARBAMAZEPINE. [Suspect]
     Active Substance: CARBAMAZEPINE
     Indication: TRIGEMINAL NEURALGIA
     Dosage: 800 MG
     Route: 065
  4. FAMPYRA [Suspect]
     Active Substance: DALFAMPRIDINE
     Dosage: 20 MG, QD
     Route: 048
     Dates: end: 201912
  5. FAMPYRA [Suspect]
     Active Substance: DALFAMPRIDINE
     Indication: GAIT DISTURBANCE
     Dosage: 20 MG, QD
     Route: 048
     Dates: start: 2012, end: 201912

REACTIONS (3)
  - Nocturia [Not Recovered/Not Resolved]
  - Trigeminal neuralgia [Recovered/Resolved]
  - Hypertension [Not Recovered/Not Resolved]

NARRATIVE: CASE EVENT DATE: 201403
